FAERS Safety Report 26132776 (Version 1)
Quarter: 2025Q4

REPORT INFORMATION
  Report Type: Spontaneous
  Country: US (occurrence: US)
  Receive Date: 20251208
  Receipt Date: 20251208
  Transmission Date: 20260118
  Serious: No
  Sender: BIOGEN
  Company Number: US-BIOGEN-2093662

PATIENT
  Age: 45 Year
  Sex: Female

DRUGS (1)
  1. TYSABRI [Suspect]
     Active Substance: NATALIZUMAB
     Indication: Multiple sclerosis
     Dates: start: 20220212, end: 20250730

REACTIONS (5)
  - Frustration tolerance decreased [Not Recovered/Not Resolved]
  - Injection site scar [Not Recovered/Not Resolved]
  - Stress [Not Recovered/Not Resolved]
  - Headache [Recovered/Resolved]
  - Prescribed underdose [Unknown]
